FAERS Safety Report 9844787 (Version 1)
Quarter: 2014Q1

REPORT INFORMATION
  Report Type: Spontaneous
  Country: US (occurrence: None)
  Receive Date: 20140122
  Receipt Date: 20140122
  Transmission Date: 20141002
  Serious: Yes (Death)
  Sender: FDA-Public Use
  Company Number: B0960481A

PATIENT
  Age: 55 Year
  Sex: Female

DRUGS (5)
  1. DIPHENHYDRAMINE [Suspect]
  2. BUPROPION HYDROCHLORIDE [Suspect]
  3. TRAMADOL HYDROCHLORIDE [Suspect]
  4. SERTRALINE (FORMULATION UNKNOWN) (GENERIC) (SERTRALINE) [Suspect]
  5. COCAINE [Concomitant]

REACTIONS (1)
  - Drug abuse [None]
